FAERS Safety Report 8163156-3 (Version None)
Quarter: 2012Q1

REPORT INFORMATION
  Report Type: 
  Country: None (occurrence: None)
  Receive Date: 20120224
  Receipt Date: 20110517
  Transmission Date: 20120608
  Serious: No
  Sender: FDA-Public Use
  Company Number: US-PFIZER INC-K201100609

PATIENT
  Age: 81 Year
  Sex: Male

DRUGS (2)
  1. ASPIRIN [Concomitant]
     Dosage: 81 MG, UNK
  2. FLECTOR [Suspect]
     Indication: ARTHRITIS
     Dosage: 1 PATCH, QD FOR 12 HOURS
     Route: 061
     Dates: start: 20110514

REACTIONS (1)
  - SPIDER VEIN [None]
